FAERS Safety Report 16527614 (Version 3)
Quarter: 2019Q3

REPORT INFORMATION
  Report Type: Not Available
  Country: US (occurrence: US)
  Receive Date: 20190703
  Receipt Date: 20190813
  Transmission Date: 20191004
  Serious: Yes (Life-Threatening, Hospitalization)
  Sender: FDA-Public Use
  Company Number: US-NEUROCRINE BIOSCIENCES INC.-2019NBI01793

PATIENT
  Age: 30 Year
  Sex: Male

DRUGS (8)
  1. ZYPREXA [Concomitant]
     Active Substance: OLANZAPINE
  2. INGREZZA [Suspect]
     Active Substance: VALBENAZINE
     Indication: TARDIVE DYSKINESIA
     Route: 048
     Dates: start: 20180410, end: 20190602
  3. PINDOLOL. [Concomitant]
     Active Substance: PINDOLOL
  4. LITHIUM. [Concomitant]
     Active Substance: LITHIUM
  5. CLOZAPINE. [Concomitant]
     Active Substance: CLOZAPINE
  6. CITALOPRAM [Concomitant]
     Active Substance: CITALOPRAM HYDROBROMIDE
  7. NALTREXONE [Concomitant]
     Active Substance: NALTREXONE
  8. ZYPREXA [Concomitant]
     Active Substance: OLANZAPINE
     Dosage: INCREASED BY 10 MG

REACTIONS (4)
  - Sepsis [Recovered/Resolved]
  - Renal failure [Recovered/Resolved]
  - Pneumonia aspiration [Recovered/Resolved]
  - Hallucination [Unknown]

NARRATIVE: CASE EVENT DATE: 20190524
